FAERS Safety Report 4377659-0 (Version None)
Quarter: 2004Q2

REPORT INFORMATION
  Report Type: 
  Country: None (occurrence: None)
  Receive Date: 20040615
  Receipt Date: 20031106
  Transmission Date: 20050107
  Serious: Yes (Hospitalization)
  Sender: FDA-Public Use
  Company Number: US-ROCHE-350890

PATIENT
  Age: 54 Year
  Sex: Male

DRUGS (5)
  1. PEG-INTERFERON ALFA 2A (RO 25-8310) [Suspect]
     Dosage: ALTHOUGH THE PATIENT WAS TOLD TO DISCONTINUE MEDICATIONS, HE CONTINUED TO TAKE 3 DOSES OF PEG-INTER+
     Route: 065
     Dates: end: 20031201
  2. PEG-INTERFERON ALFA 2A (RO 25-8310) [Suspect]
     Route: 065
  3. RIBAVIRIN [Suspect]
     Route: 048
     Dates: end: 20031027
  4. BLINDED POLYENYLPHOSPHATIDYLCHOLINE [Suspect]
     Dosage: FORMULATION = CHEWABLE TABLETS.
     Route: 048
     Dates: end: 20031027
  5. BLINDED POLYENYLPHOSPHATIDYLCHOLINE [Suspect]
     Route: 048

REACTIONS (22)
  - ANAEMIA [None]
  - ASTHENIA [None]
  - AUTONOMIC NEUROPATHY [None]
  - BLOOD CREATININE INCREASED [None]
  - BLOOD GLUCOSE FLUCTUATION [None]
  - BLOOD POTASSIUM INCREASED [None]
  - DEHYDRATION [None]
  - DIABETIC COMPLICATION [None]
  - DIARRHOEA [None]
  - DISORIENTATION [None]
  - DISTURBANCE IN ATTENTION [None]
  - DIZZINESS [None]
  - HYPERGLYCAEMIA [None]
  - HYPERTENSION [None]
  - INSOMNIA [None]
  - LUNG INFILTRATION [None]
  - NAUSEA [None]
  - ORTHOSTATIC HYPOTENSION [None]
  - RENAL DISORDER [None]
  - SYNCOPE [None]
  - SYNCOPE VASOVAGAL [None]
  - VISION BLURRED [None]
